FAERS Safety Report 6245484-1 (Version None)
Quarter: 2009Q2

REPORT INFORMATION
  Report Type: 
  Country: None (occurrence: None)
  Receive Date: 20090619
  Receipt Date: 20090316
  Transmission Date: 20091009
  Serious: No
  Sender: FDA-Public Use
  Company Number: ALL1-2009-00616

PATIENT
  Age: 12 Year
  Sex: Female
  Weight: 45.4 kg

DRUGS (10)
  1. VYVANSE [Suspect]
     Indication: ATTENTION DEFICIT/HYPERACTIVITY DISORDER
     Dosage: 30 MG, 1X/DAY:QD, ORAL ; 40 MG, 1X/DAY:QD, ORAL
     Route: 048
     Dates: start: 20060101, end: 20090101
  2. VYVANSE [Suspect]
     Indication: ATTENTION DEFICIT/HYPERACTIVITY DISORDER
     Dosage: 30 MG, 1X/DAY:QD, ORAL ; 40 MG, 1X/DAY:QD, ORAL
     Route: 048
     Dates: start: 20090301
  3. DAYTRANA [Concomitant]
  4. ADDERALL XR (AMFETAMINE ASPARTATE, AMFETAMINE SULFATE, DEXAMFETAMINE S [Concomitant]
  5. ALBUTEROL /00139501/ (SALBUTAMOL) [Concomitant]
  6. ZYRTEC [Concomitant]
  7. COLACE (DOCUSATE SODIUM) [Concomitant]
  8. PRENATAL VITAMINS /01549301/ (ASCORBIC ACID, BIOTIN, MINERALS NOS, NIC [Concomitant]
  9. MELATONIN (MELATONIN) [Concomitant]
  10. RITALIN [Concomitant]

REACTIONS (8)
  - DRUG INEFFECTIVE [None]
  - EDUCATIONAL PROBLEM [None]
  - EMOTIONAL DISTRESS [None]
  - HEADACHE [None]
  - INCREASED APPETITE [None]
  - LICE INFESTATION [None]
  - NEGATIVISM [None]
  - PARANOIA [None]
